FAERS Safety Report 4972120-4 (Version None)
Quarter: 2006Q2

REPORT INFORMATION
  Report Type: 
  Country: None (occurrence: None)
  Receive Date: 20060412
  Receipt Date: 20060412
  Transmission Date: 20061013
  Serious: Yes (Hospitalization, Other)
  Sender: FDA-Public Use
  Company Number: None

PATIENT
  Sex: Female
  Weight: 84.3 kg

DRUGS (2)
  1. CARBOPLATIN [Suspect]
     Indication: NON-SMALL CELL LUNG CANCER
     Dosage: 1201 MG
     Dates: start: 20060308, end: 20060403
  2. TAXOL [Suspect]
     Dosage: 500 MG
     Dates: start: 20060308, end: 20060403

REACTIONS (9)
  - CHILLS [None]
  - HEART RATE INCREASED [None]
  - HYPOTENSION [None]
  - LUNG INFECTION [None]
  - MUCOSAL INFLAMMATION [None]
  - NEUTROPENIA [None]
  - OXYGEN SATURATION DECREASED [None]
  - PYREXIA [None]
  - RESPIRATORY RATE INCREASED [None]
